FAERS Safety Report 10471751 (Version 2)
Quarter: 2014Q3

REPORT INFORMATION
  Report Type: Spontaneous
  Country: FR (occurrence: MQ)
  Receive Date: 20140923
  Receipt Date: 20140923
  Transmission Date: 20150326
  Serious: Yes (Death, Hospitalization, Other)
  Sender: FDA-Public Use
  Company Number: PHHY2014MQ116300

PATIENT
  Age: 68 Year
  Sex: Male

DRUGS (7)
  1. PREDNISONE. [Suspect]
     Active Substance: PREDNISONE
     Indication: B-CELL LYMPHOMA
  2. VORICONAZOLE. [Suspect]
     Active Substance: VORICONAZOLE
     Dosage: 200 MG, QD
     Route: 048
  3. ONCOVIN [Suspect]
     Active Substance: VINCRISTINE SULFATE
     Indication: B-CELL LYMPHOMA
  4. CYCLOPHOSPHAMIDE. [Suspect]
     Active Substance: CYCLOPHOSPHAMIDE
     Indication: B-CELL LYMPHOMA
  5. RITUXIMAB [Suspect]
     Active Substance: RITUXIMAB
     Indication: B-CELL LYMPHOMA
  6. DOXORUBICIN [Suspect]
     Active Substance: DOXORUBICIN
     Indication: B-CELL LYMPHOMA
  7. CORTICOSTEROIDS [Suspect]
     Active Substance: CORTICOSTEROID NOS
     Indication: PANCYTOPENIA

REACTIONS (11)
  - Disturbance in attention [Unknown]
  - Skin ulcer [Unknown]
  - Immunodeficiency [Unknown]
  - Drug ineffective [Unknown]
  - B-cell lymphoma [Fatal]
  - Fungal infection [Unknown]
  - Skin haemorrhage [Unknown]
  - Febrile neutropenia [Unknown]
  - Headache [Unknown]
  - Skin lesion [Unknown]
  - Skin discolouration [Unknown]
